FAERS Safety Report 4811133-X (Version None)
Quarter: 2005Q4

REPORT INFORMATION
  Report Type: 
  Country: None (occurrence: None)
  Receive Date: 20051027
  Receipt Date: 20051025
  Transmission Date: 20060501
  Serious: Yes (Other)
  Sender: FDA-Public Use
  Company Number: US-GLAXOSMITHKLINE-A0579606A

PATIENT
  Age: 47 Year
  Sex: Male

DRUGS (5)
  1. WELLBUTRIN [Suspect]
     Indication: DEPRESSION
     Dosage: 150MG UNKNOWN
     Route: 045
     Dates: start: 20041201
  2. LITHIUM [Concomitant]
  3. RISPERDAL [Concomitant]
  4. ELAVIL [Concomitant]
  5. LAMICTAL [Concomitant]

REACTIONS (4)
  - AGITATION [None]
  - DRUG ADMINISTRATION ERROR [None]
  - MANIA [None]
  - RESTLESSNESS [None]
